FAERS Safety Report 10862996 (Version 4)
Quarter: 2015Q2

REPORT INFORMATION
  Report Type: Spontaneous
  Country: CA (occurrence: None)
  Receive Date: 20150219
  Receipt Date: 20150417
  Transmission Date: 20150821
  Serious: Yes (Other)
  Sender: FDA-Public Use
  Company Number: CA-2015VAL000151

PATIENT
  Age: 40 Year
  Sex: Male

DRUGS (6)
  1. METOPROLOL TARTRATE (METOPROLOL TARTRATE) UNKNOWN [Suspect]
     Active Substance: METOPROLOL TARTRATE
     Indication: HYPERTENSION
     Route: 048
  2. RAMIPRIL (RAMIPRIL) [Concomitant]
     Active Substance: RAMIPRIL
  3. AMLODINE (AMLODIPINE) [Concomitant]
  4. LOSARTAN (LOSARTAN) [Concomitant]
     Active Substance: LOSARTAN
  5. BEXSERO [Suspect]
     Active Substance: MENINGOCOCCAL GROUP B VACCINE
     Indication: IMMUNISATION
     Dosage: 1 DF, UNK, INTRAMUSCULAR
     Route: 030
     Dates: start: 20150115
  6. LASIX [Concomitant]
     Active Substance: FUROSEMIDE

REACTIONS (7)
  - Headache [None]
  - Oropharyngeal pain [None]
  - Proteinuria [None]
  - Blood pressure systolic increased [None]
  - Therapy cessation [None]
  - Blood pressure diastolic increased [None]
  - Off label use [None]

NARRATIVE: CASE EVENT DATE: 201501
